FAERS Safety Report 23696576 (Version 8)
Quarter: 2024Q4

REPORT INFORMATION
  Report Type: Spontaneous
  Country: US (occurrence: US)
  Receive Date: 20240402
  Receipt Date: 20241025
  Transmission Date: 20250114
  Serious: No
  Sender: NOVARTIS
  Company Number: US-002147023-NVSC2024US069773

PATIENT
  Sex: Female

DRUGS (3)
  1. TAFINLAR [Suspect]
     Active Substance: DABRAFENIB MESYLATE
     Indication: Thyroid cancer
     Dosage: 75 MG, BID
     Route: 048
     Dates: start: 202403
  2. MEKINIST [Suspect]
     Active Substance: TRAMETINIB DIMETHYL SULFOXIDE
     Indication: Thyroid cancer
     Dosage: 1 MG, QD
     Route: 048
     Dates: start: 202403
  3. MEKINIST [Suspect]
     Active Substance: TRAMETINIB DIMETHYL SULFOXIDE
     Dosage: 0.5 MG, QD
     Route: 048
     Dates: start: 202403

REACTIONS (12)
  - Dysphagia [Unknown]
  - Swelling [Unknown]
  - Nausea [Unknown]
  - Vomiting [Recovered/Resolved]
  - Oedema [Unknown]
  - Petechiae [Unknown]
  - Joint swelling [Unknown]
  - Blister [Unknown]
  - Erythema [Unknown]
  - Stomatitis [Unknown]
  - Oral mucosal erythema [Unknown]
  - Mouth ulceration [Unknown]
